FAERS Safety Report 5479179-9 (Version None)
Quarter: 2007Q4

REPORT INFORMATION
  Report Type: 
  Country: None (occurrence: None)
  Receive Date: 20071008
  Receipt Date: 20070925
  Transmission Date: 20080405
  Serious: Yes (Life-Threatening, Hospitalization, Other)
  Sender: FDA-Public Use
  Company Number: DE-ELI_LILLY_AND_COMPANY-DE200709005588

PATIENT
  Sex: Female

DRUGS (9)
  1. OLANZAPINE [Suspect]
     Indication: PARANOIA
     Dosage: 5 MG, UNK
     Route: 048
     Dates: start: 20070524, end: 20070915
  2. TORSEMIDE [Concomitant]
  3. RAMIPRIL [Concomitant]
  4. OSYROL [Concomitant]
  5. NEXIUM [Concomitant]
  6. SANDOCAL [Concomitant]
  7. LEVOTHYROXINE SODIUM [Concomitant]
  8. DIGIMERCK PICO [Concomitant]
  9. DECORTIN-H [Concomitant]

REACTIONS (2)
  - CEREBRAL ISCHAEMIA [None]
  - HEMIPARESIS [None]
